FAERS Safety Report 9372393 (Version 1)
Quarter: 2013Q2

REPORT INFORMATION
  Report Type: Report from Study
  Country: US (occurrence: US)
  Receive Date: 20130627
  Receipt Date: 20130627
  Transmission Date: 20140414
  Serious: Yes (Other)
  Sender: FDA-Public Use
  Company Number: US-MYLANLABS-2012S1022341

PATIENT
  Age: 43 Year
  Sex: Female
  Weight: 93.1 kg

DRUGS (7)
  1. CLOZAPINE TABLETS [Suspect]
     Indication: SCHIZOPHRENIA
     Route: 048
     Dates: start: 20120920, end: 20120924
  2. HCTZ [Concomitant]
  3. OXCARBAZEPINE [Concomitant]
  4. PALIPERIDONE [Concomitant]
  5. RISPERDAL [Concomitant]
  6. AMBIEN [Concomitant]
  7. KCL [Concomitant]

REACTIONS (1)
  - Granulocytopenia [Not Recovered/Not Resolved]
